FAERS Safety Report 9299642 (Version 1)
Quarter: 2013Q2

REPORT INFORMATION
  Report Type: Spontaneous
  Country: US (occurrence: US)
  Receive Date: 20130521
  Receipt Date: 20130521
  Transmission Date: 20140414
  Serious: No
  Sender: FDA-Public Use
  Company Number: US-BIOGENIDEC-2013BI044713

PATIENT
  Age: 46 Year
  Sex: Female

DRUGS (2)
  1. TYSABRI [Suspect]
     Indication: MULTIPLE SCLEROSIS
     Route: 042
     Dates: start: 20110630
  2. AVONEX [Concomitant]
     Indication: MULTIPLE SCLEROSIS
     Route: 030

REACTIONS (6)
  - Paronychia [Not Recovered/Not Resolved]
  - Nail injury [Not Recovered/Not Resolved]
  - Upper respiratory tract congestion [Unknown]
  - Cough [Unknown]
  - Sinusitis [Recovered/Resolved]
  - Asthenia [Not Recovered/Not Resolved]
